FAERS Safety Report 4882786-5 (Version None)
Quarter: 2006Q1

REPORT INFORMATION
  Report Type: 
  Country: None (occurrence: None)
  Receive Date: 20060117
  Receipt Date: 20060106
  Transmission Date: 20060701
  Serious: Yes (Hospitalization)
  Sender: FDA-Public Use
  Company Number: DE-JNJFOC-20060101317

PATIENT
  Sex: Female

DRUGS (2)
  1. HALDOL [Suspect]
     Indication: SEDATION
     Route: 065
  2. PARACEPHAN [Suspect]
     Indication: SEDATION
     Route: 065

REACTIONS (7)
  - ALCOHOL WITHDRAWAL SYNDROME [None]
  - BRONCHITIS [None]
  - DEPRESSED LEVEL OF CONSCIOUSNESS [None]
  - HAEMOGLOBIN DECREASED [None]
  - HEPATIC STEATOSIS [None]
  - HYPERTONIA [None]
  - VENTRICULAR TACHYCARDIA [None]
